FAERS Safety Report 4597585-1 (Version None)
Quarter: 2005Q1

REPORT INFORMATION
  Report Type: 
  Country: None (occurrence: None)
  Receive Date: 20050228
  Receipt Date: 20050228
  Transmission Date: 20050727
  Serious: Yes (Life-Threatening, Hospitalization)
  Sender: FDA-Public Use
  Company Number: None

PATIENT
  Sex: Female
  Weight: 61.2356 kg

DRUGS (3)
  1. VIOXX [Suspect]
     Indication: FIBROMYALGIA
     Dosage: DAILY ORAL
     Route: 048
  2. VIOXX [Suspect]
     Indication: PAIN
     Dosage: DAILY ORAL
     Route: 048
  3. BEXTRA [Suspect]
     Indication: PAIN
     Dosage: DAILY ORAL
     Route: 048

REACTIONS (4)
  - EYELID MARGIN CRUSTING [None]
  - HORDEOLUM [None]
  - IMPETIGO [None]
  - PULMONARY EMBOLISM [None]
